FAERS Safety Report 7502495-3 (Version None)
Quarter: 2011Q1

REPORT INFORMATION
  Report Type: 
  Country: None (occurrence: None)
  Receive Date: 20110318
  Receipt Date: 20100412
  Transmission Date: 20110831
  Serious: Yes (Other)
  Sender: FDA-Public Use
  Company Number: 2010SP021175

PATIENT
  Age: 53 Year
  Sex: Female

DRUGS (1)
  1. PEG-INTRON [Suspect]
     Indication: PRODUCT USED FOR UNKNOWN INDICATION
     Dosage: 150 MCG;SC
     Route: 058

REACTIONS (1)
  - CEREBROVASCULAR ACCIDENT [None]
